FAERS Safety Report 23002355 (Version 3)
Quarter: 2023Q4

REPORT INFORMATION
  Report Type: Spontaneous
  Country: US (occurrence: US)
  Receive Date: 20230928
  Receipt Date: 20231204
  Transmission Date: 20240109
  Serious: Yes (Other)
  Sender: FDA-Public Use
  Company Number: US-BRISTOL-MYERS SQUIBB COMPANY-2023-137408

PATIENT
  Age: 70 Year
  Sex: Female

DRUGS (1)
  1. REVLIMID [Suspect]
     Active Substance: LENALIDOMIDE
     Indication: Plasma cell myeloma in remission
     Dosage: DAILY FOR 21 DAYS AND 7 DAYS OFF
     Route: 048

REACTIONS (4)
  - Neuropathy peripheral [Unknown]
  - Muscle spasms [Unknown]
  - Tooth resorption [Unknown]
  - Plasma cell myeloma recurrent [Unknown]
